FAERS Safety Report 9243845 (Version 2)
Quarter: 2013Q3

REPORT INFORMATION
  Report Type: Spontaneous
  Country: US (occurrence: US)
  Receive Date: 20130422
  Receipt Date: 20130925
  Transmission Date: 20140515
  Serious: No
  Sender: FDA-Public Use
  Company Number: US-BIOGENIDEC-2013BI035442

PATIENT
  Age: 49 Year
  Sex: Female

DRUGS (2)
  1. TYSABRI [Suspect]
     Indication: MULTIPLE SCLEROSIS
     Route: 042
     Dates: start: 20110830
  2. AVONEX [Concomitant]
     Indication: MULTIPLE SCLEROSIS
     Route: 030
     Dates: start: 19981210

REACTIONS (5)
  - Upper limb fracture [Recovered/Resolved]
  - Tooth fracture [Recovered/Resolved]
  - Tooth disorder [Unknown]
  - Oral infection [Recovered/Resolved]
  - Drug effect decreased [Recovered/Resolved with Sequelae]
